FAERS Safety Report 14319880 (Version 3)
Quarter: 2018Q2

REPORT INFORMATION
  Report Type: Not Available
  Country: US (occurrence: US)
  Receive Date: 20171222
  Receipt Date: 20180413
  Transmission Date: 20180711
  Serious: Yes (Hospitalization)
  Sender: FDA-Public Use
  Company Number: US-NEUROCRINE BIOSCIENCES INC.-2017NBI01972

PATIENT
  Sex: Female

DRUGS (15)
  1. LEVOTHYROXINE. [Concomitant]
     Active Substance: LEVOTHYROXINE
     Dosage: IN THE MORNING
  2. INGREZZA [Suspect]
     Active Substance: VALBENAZINE
     Route: 048
     Dates: start: 20171125, end: 20171129
  3. INGREZZA [Suspect]
     Active Substance: VALBENAZINE
     Indication: EXTRAPYRAMIDAL DISORDER
     Route: 048
     Dates: start: 20171117, end: 20171124
  4. LASIX [Concomitant]
     Active Substance: FUROSEMIDE
     Dosage: IN THE MORNING
  5. PROTONIX [Concomitant]
     Active Substance: PANTOPRAZOLE SODIUM
     Dosage: IN THE MORNING
  6. TRAZODONE [Concomitant]
     Active Substance: TRAZODONE HYDROCHLORIDE
     Indication: INSOMNIA
     Dosage: AT BEDTIME
  7. RISPERDAL [Concomitant]
     Active Substance: RISPERIDONE
     Dosage: AT BEDTIME
  8. LAMICTAL [Concomitant]
     Active Substance: LAMOTRIGINE
     Dosage: IN THE MORNING
  9. MOBIC [Concomitant]
     Active Substance: MELOXICAM
     Indication: ARTHRITIS
     Dosage: IN THE MORNING
  10. MULTIVITAMIN [Concomitant]
     Active Substance: VITAMINS
  11. RISPERDAL [Concomitant]
     Active Substance: RISPERIDONE
     Dosage: IN THE MORNING
  12. DEPAKOTE [Concomitant]
     Active Substance: DIVALPROEX SODIUM
  13. NORVASC [Concomitant]
     Active Substance: AMLODIPINE BESYLATE
  14. BENZONATE [Concomitant]
     Active Substance: BENZONATATE
  15. RISPERDAL [Concomitant]
     Active Substance: RISPERIDONE

REACTIONS (5)
  - Blood pressure abnormal [Recovered/Resolved]
  - Asthenia [Recovered/Resolved]
  - Delusion [Unknown]
  - Fall [Recovered/Resolved]
  - Mental status changes [Recovered/Resolved]
